FAERS Safety Report 22697415 (Version 6)
Quarter: 2023Q4

REPORT INFORMATION
  Report Type: Spontaneous
  Country: US (occurrence: US)
  Receive Date: 20230712
  Receipt Date: 20231117
  Transmission Date: 20240110
  Serious: Yes (Hospitalization, Other)
  Sender: FDA-Public Use
  Company Number: US-PFIZER INC-PV202300120315

PATIENT
  Age: 72 Year
  Sex: Female
  Weight: 75.283 kg

DRUGS (1)
  1. TIKOSYN [Suspect]
     Active Substance: DOFETILIDE
     Dosage: 250 UG, 2X/DAY
     Dates: start: 2008

REACTIONS (4)
  - Cardiac ablation [Unknown]
  - Implantable defibrillator insertion [Unknown]
  - Atrioventricular block [Unknown]
  - Dysphagia [Unknown]

NARRATIVE: CASE EVENT DATE: 20150101
